FAERS Safety Report 5030074-9 (Version None)
Quarter: 2006Q2

REPORT INFORMATION
  Report Type: 
  Country: None (occurrence: None)
  Receive Date: 20060620
  Receipt Date: 20030718
  Transmission Date: 20061013
  Serious: Yes (Death, Other)
  Sender: FDA-Public Use
  Company Number: TOS-000572

PATIENT
  Age: 56 Year
  Sex: Male

DRUGS (4)
  1. BEXXAR [Suspect]
     Indication: NON-HODGKIN'S LYMPHOMA
     Route: 042
     Dates: start: 20000126, end: 20000126
  2. IODINE I 131 TOSITUMOMAB [Suspect]
     Indication: NON-HODGKIN'S LYMPHOMA
     Route: 042
     Dates: start: 20000126, end: 20000126
  3. BEXXAR [Suspect]
     Route: 042
     Dates: start: 20000202, end: 20000202
  4. IODINE I 131 TOSITUMOMAB [Suspect]
     Route: 042
     Dates: start: 20000202, end: 20000202

REACTIONS (14)
  - ARTHROPOD BITE [None]
  - BLOOD LACTATE DEHYDROGENASE INCREASED [None]
  - BONE MARROW FAILURE [None]
  - DECREASED APPETITE [None]
  - MYELODYSPLASTIC SYNDROME [None]
  - NAUSEA [None]
  - PHARYNGOLARYNGEAL PAIN [None]
  - PRODUCTIVE COUGH [None]
  - PULMONARY CONGESTION [None]
  - REFRACTORY ANAEMIA [None]
  - SEPSIS [None]
  - SINUSITIS [None]
  - UPPER RESPIRATORY TRACT INFECTION [None]
  - WEIGHT DECREASED [None]
